FAERS Safety Report 10967315 (Version 2)
Quarter: 2015Q2

REPORT INFORMATION
  Report Type: Report from Study
  Country: DE (occurrence: DE)
  Receive Date: 20150330
  Receipt Date: 20150417
  Transmission Date: 20150821
  Serious: Yes (Other)
  Sender: FDA-Public Use
  Company Number: DE-GILEAD-2015-0144331

PATIENT
  Age: 52 Year
  Sex: Female
  Weight: 68 kg

DRUGS (3)
  1. SOFOSBUVIR [Suspect]
     Active Substance: SOFOSBUVIR
     Indication: CHRONIC HEPATITIS C
     Dosage: 400 MG, QD
     Route: 048
     Dates: start: 20141024
  2. RIBAVIRIN. [Suspect]
     Active Substance: RIBAVIRIN
     Indication: CHRONIC HEPATITIS C
     Dosage: 1000 MG, QD
     Route: 048
     Dates: start: 20141024
  3. DACLATASVIR [Suspect]
     Active Substance: DACLATASVIR
     Indication: CHRONIC HEPATITIS C
     Dosage: 60 MG, QD
     Route: 048
     Dates: start: 20141024

REACTIONS (15)
  - Respiratory distress [Recovered/Resolved]
  - Sinusitis [Recovered/Resolved]
  - Blood pressure increased [Recovering/Resolving]
  - Paraesthesia [Unknown]
  - Pollakiuria [Recovered/Resolved]
  - Palpitations [Unknown]
  - Dyspnoea [Unknown]
  - Irritability [Recovered/Resolved]
  - Chills [Recovering/Resolving]
  - Abdominal discomfort [Recovered/Resolved]
  - Tachycardia [Recovered/Resolved]
  - Fatigue [Recovering/Resolving]
  - Dizziness [Recovering/Resolving]
  - Insomnia [Recovering/Resolving]
  - Headache [Recovering/Resolving]

NARRATIVE: CASE EVENT DATE: 20141025
